FAERS Safety Report 4369172-1 (Version None)
Quarter: 2004Q2

REPORT INFORMATION
  Report Type: 
  Country: None (occurrence: None)
  Receive Date: 20040528
  Receipt Date: 20040519
  Transmission Date: 20050107
  Serious: Yes (Hospitalization)
  Sender: FDA-Public Use
  Company Number: FR-JNJFOC-20040504245

PATIENT
  Age: 50 Year
  Sex: Female

DRUGS (1)
  1. IXPRIM (TRAMADOL HYDROCHLORIDE) TABLETS [Suspect]
     Indication: DRUG USE FOR UNKNOWN INDICATION
     Dosage: 40 DOSE(S), 1 IN 1 TOTAL, ORAL
     Route: 048
     Dates: start: 20040316, end: 20040316

REACTIONS (4)
  - BLOOD BICARBONATE DECREASED [None]
  - OVERDOSE [None]
  - SUICIDE ATTEMPT [None]
  - TACHYCARDIA [None]
